FAERS Safety Report 9531334 (Version 1)
Quarter: 2013Q1

REPORT INFORMATION
  Report Type: Spontaneous
  Country: US (occurrence: None)
  Receive Date: 20130319
  Receipt Date: 20130319
  Transmission Date: 20140127
  Serious: Yes (Other)
  Sender: FDA-Public Use
  Company Number: US-JNJFOC-20121108419

PATIENT
  Age: 62 Year
  Sex: Male
  Weight: 89.36 kg

DRUGS (1)
  1. ROGAINE FOR MEN EXTRA STRENGTH FOAM UNSCENTED [Suspect]
     Indication: HAIR GROWTH ABNORMAL
     Route: 061
     Dates: start: 20121007, end: 20121107

REACTIONS (3)
  - Weight increased [None]
  - Oedema peripheral [None]
  - Underdose [None]
